FAERS Safety Report 17809295 (Version 2)
Quarter: 2020Q2

REPORT INFORMATION
  Report Type: Report from Study
  Country: SE (occurrence: SE)
  Receive Date: 20200520
  Receipt Date: 20200522
  Transmission Date: 20200714
  Serious: Yes (Hospitalization, Other)
  Sender: FDA-Public Use
  Company Number: SE-CELGENEUS-SWE-2015053503

PATIENT
  Age: 53 Year
  Sex: Male
  Weight: 86 kg

DRUGS (5)
  1. REVLIMID [Suspect]
     Active Substance: LENALIDOMIDE
     Indication: MYELODYSPLASTIC SYNDROME
     Route: 048
     Dates: start: 20140908, end: 20150209
  2. AZACITIDINE INJECTABLE [Suspect]
     Active Substance: AZACITIDINE
     Indication: MYELODYSPLASTIC SYNDROME
     Route: 058
     Dates: start: 20140908, end: 20150209
  3. TAVANIC [Concomitant]
     Active Substance: LEVOFLOXACIN
     Indication: ABSCESS
     Dosage: 750 MILLIGRAM
     Route: 048
     Dates: start: 20141103, end: 20150202
  4. DILTIAZEM. [Concomitant]
     Active Substance: DILTIAZEM
     Indication: SKIN ULCER
     Route: 048
     Dates: start: 20150211, end: 20150215
  5. DILTIAZEM. [Concomitant]
     Active Substance: DILTIAZEM
     Indication: PROPHYLAXIS
     Dosage: 200 MILLIGRAM
     Route: 048
     Dates: start: 20141021, end: 20141204

REACTIONS (7)
  - Febrile neutropenia [Recovered/Resolved with Sequelae]
  - Anal abscess [Recovered/Resolved with Sequelae]
  - Skin ulcer [Recovered/Resolved with Sequelae]
  - Pneumonia [Recovered/Resolved]
  - Constipation [Unknown]
  - Pneumonia [Not Recovered/Not Resolved]
  - Sepsis [Not Recovered/Not Resolved]

NARRATIVE: CASE EVENT DATE: 20141209
